FAERS Safety Report 9696087 (Version 3)
Quarter: 2014Q2

REPORT INFORMATION
  Report Type: Report from Study
  Country: AU (occurrence: AU)
  Receive Date: 20131119
  Receipt Date: 20140404
  Transmission Date: 20141212
  Serious: Yes (Hospitalization)
  Sender: FDA-Public Use
  Company Number: AU-GLAXOSMITHKLINE-B0935992B

PATIENT
  Sex: Male

DRUGS (5)
  1. DABRAFENIB [Suspect]
     Indication: METASTATIC MALIGNANT MELANOMA
     Dosage: 150MG TWICE PER DAY
     Route: 048
     Dates: start: 20130926
  2. TRAMETINIB [Suspect]
     Indication: METASTATIC MALIGNANT MELANOMA
     Dosage: 2MG PER DAY
     Route: 048
     Dates: start: 20130926
  3. OXYCONTIN CR [Concomitant]
     Indication: PAIN
     Dosage: 10MG TWICE PER DAY
     Route: 048
  4. PREDNISONE [Concomitant]
     Indication: PROPHYLAXIS
     Dosage: 10MG TWICE PER DAY
     Route: 048
     Dates: start: 20131022
  5. ESOMEPRAZOLE [Concomitant]
     Indication: GASTRITIS PROPHYLAXIS
     Dosage: 40MG PER DAY
     Route: 048
     Dates: start: 20131022

REACTIONS (4)
  - Pyrexia [Recovered/Resolved]
  - Vomiting [Recovering/Resolving]
  - Liver function test abnormal [Unknown]
  - Dysphagia [Unknown]
